FAERS Safety Report 13559343 (Version 10)
Quarter: 2018Q1

REPORT INFORMATION
  Report Type: Report from Study
  Country: None (occurrence: CL)
  Receive Date: 20170518
  Receipt Date: 20180212
  Transmission Date: 20180508
  Serious: Yes (Other)
  Sender: FDA-Public Use
  Company Number: CL-ABBVIE-17K-034-1977968-00

PATIENT
  Age: 35 Year
  Sex: Female

DRUGS (9)
  1. HUMIRA [Suspect]
     Active Substance: ADALIMUMAB
     Route: 058
     Dates: start: 20170412, end: 20170421
  2. HUMIRA [Suspect]
     Active Substance: ADALIMUMAB
     Route: 058
     Dates: start: 20170421, end: 2017
  3. CALDECE [Concomitant]
     Indication: PRODUCT USED FOR UNKNOWN INDICATION
  4. HUMIRA [Suspect]
     Active Substance: ADALIMUMAB
     Route: 058
     Dates: start: 20170519
  5. IRON [Concomitant]
     Active Substance: IRON
     Indication: PRODUCT USED FOR UNKNOWN INDICATION
  6. VITAMIN D [Concomitant]
     Active Substance: CHOLECALCIFEROL
     Indication: VITAMIN SUPPLEMENTATION
  7. PREDNISONE. [Concomitant]
     Active Substance: PREDNISONE
     Indication: PRODUCT USED FOR UNKNOWN INDICATION
  8. AZATHIOPRINE. [Concomitant]
     Active Substance: AZATHIOPRINE
     Indication: PRODUCT USED FOR UNKNOWN INDICATION
  9. HUMIRA [Suspect]
     Active Substance: ADALIMUMAB
     Indication: COLITIS ULCERATIVE
     Route: 058
     Dates: start: 20170329, end: 20170329

REACTIONS (13)
  - Frequent bowel movements [Not Recovered/Not Resolved]
  - Cytomegalovirus gastrointestinal infection [Recovering/Resolving]
  - Premature rupture of membranes [Not Recovered/Not Resolved]
  - Cholestasis [Recovered/Resolved]
  - Exposure during pregnancy [Unknown]
  - Haematochezia [Recovered/Resolved]
  - Colitis ulcerative [Unknown]
  - Rash [Not Recovered/Not Resolved]
  - Device issue [Unknown]
  - Live birth [Unknown]
  - Anaemia [Recovered/Resolved]
  - Rectal haemorrhage [Recovering/Resolving]
  - Pruritus generalised [Not Recovered/Not Resolved]

NARRATIVE: CASE EVENT DATE: 2017
